FAERS Safety Report 17367437 (Version 2)
Quarter: 2020Q1

REPORT INFORMATION
  Report Type: Report from Study
  Country: NL (occurrence: NL)
  Receive Date: 20200204
  Receipt Date: 20200228
  Transmission Date: 20200409
  Serious: Yes (Hospitalization, Other)
  Sender: FDA-Public Use
  Company Number: NL-AMGEN-NLDSL2019202442

PATIENT
  Age: 58 Year
  Sex: Female

DRUGS (14)
  1. FENTANYL. [Concomitant]
     Active Substance: FENTANYL
     Dosage: 25 MICROGRAM/HR (GENERIC+DUROGESIC) 1 PL PER 3 DAYS
  2. CALCIUM CARBONATE;COLECALCIFEROL [Concomitant]
     Active Substance: CALCIUM CARBONATE\CHOLECALCIFEROL
     Dosage: 1.25 GRAM/400IE (500MG CA) 1D1T
  3. MAGNESIUMHYDROXIDE [Concomitant]
     Dosage: 724 MILLIGRAM, 3D1T
  4. METHYLCELLULOSE [Concomitant]
     Active Substance: METHYLCELLULOSES
     Dosage: 5 MILLIGRAM PER MILLILITRE, 6D1DR
  5. XGEVA [Suspect]
     Active Substance: DENOSUMAB
     Indication: PROPHYLAXIS
     Dosage: 120 MILLIGRAM,70MG/ML FLACON 1.7ML,  Q4WK
     Route: 065
     Dates: start: 20190404
  6. CICLOPIROX. [Concomitant]
     Active Substance: CICLOPIROX
     Dosage: 10 MILLIGRAM PER GRAM, 2D
  7. XGEVA [Suspect]
     Active Substance: DENOSUMAB
     Dosage: 120 MILLIGRAM (1.7 ML) Q4WK
     Route: 065
  8. MACROGOL [Concomitant]
     Active Substance: POLYETHYLENE GLYCOLS
     Dosage: SALTS PDR V DRANK (MOVIC/MOLAX/LAXT/GEN),
  9. MOMETASON [Concomitant]
     Active Substance: MOMETASONE FUROATE
     Dosage: 1 MILLIGRAM PER GRAM,1D
  10. PANTOPRAZOL [PANTOPRAZOLE] [Concomitant]
     Active Substance: PANTOPRAZOLE
     Dosage: 40 MILLIGRAM, 1D1T
  11. ONDANSETRON [Concomitant]
     Active Substance: ONDANSETRON
     Dosage: 8 MILLIGRAM, 1D1T
  12. FENTANYL. [Concomitant]
     Active Substance: FENTANYL
     Dosage: 100 MICROGRAM/DO FL 40DO
  13. FUROSEMIDE. [Concomitant]
     Active Substance: FUROSEMIDE
     Dosage: 40 MILLIGRAM, 1D2T
  14. SPIRONOLACTON [Concomitant]
     Active Substance: SPIRONOLACTONE
     Dosage: 100 MILLIGRAM, 1D1T

REACTIONS (5)
  - Malaise [Unknown]
  - Unevaluable event [Recovered/Resolved]
  - Blood calcium abnormal [Unknown]
  - Hypophagia [Unknown]
  - Blood potassium abnormal [Unknown]

NARRATIVE: CASE EVENT DATE: 201911
